FAERS Safety Report 10035519 (Version 1)
Quarter: 2014Q1

REPORT INFORMATION
  Report Type: Spontaneous
  Country: US (occurrence: US)
  Receive Date: 20140325
  Receipt Date: 20140325
  Transmission Date: 20141002
  Serious: No
  Sender: FDA-Public Use
  Company Number: US-PFIZER INC-2014083569

PATIENT
  Age: 81 Year
  Sex: Female
  Weight: 77.1 kg

DRUGS (6)
  1. ADVIL [Suspect]
     Indication: HEADACHE
     Dosage: UNK, AS NEEDED
  2. ADVIL [Suspect]
     Indication: BACK PAIN
  3. ADVIL [Suspect]
     Indication: PAIN
  4. ALEVE [Suspect]
     Indication: HEADACHE
     Dosage: UNK, AS NEEDED
  5. ALEVE [Suspect]
     Indication: BACK PAIN
  6. ALEVE [Suspect]
     Indication: PAIN

REACTIONS (1)
  - Drug ineffective [Unknown]
